FAERS Safety Report 7287154-7 (Version None)
Quarter: 2010Q4

REPORT INFORMATION
  Report Type: 
  Country: None (occurrence: None)
  Receive Date: 20101222
  Receipt Date: 20100921
  Transmission Date: 20110411
  Serious: Yes (Hospitalization)
  Sender: FDA-Public Use
  Company Number: US-000088

PATIENT
  Sex: Male

DRUGS (12)
  1. ZENPEP [Suspect]
     Indication: PANCREATITIS
     Dosage: (5 20,000 UNIT CAPSULES WITH EACH MEAL AND 3 CAPSULES WITH SNACKS ORAL)
     Route: 048
     Dates: start: 20100201, end: 20100801
  2. LEXAPRO [Concomitant]
  3. MORPHINE [Concomitant]
  4. TRAZODONE HCL [Concomitant]
  5. LANTUS [Concomitant]
  6. HUMALOG [Concomitant]
  7. SIMVASTATIN [Concomitant]
  8. PRILOSEC [Concomitant]
  9. WARFARIN [Concomitant]
  10. LISINOPRIL [Concomitant]
  11. FLOMAX /01280302 [Concomitant]
  12. TESTOSTERONE [Concomitant]

REACTIONS (3)
  - ENDOCARDITIS CANDIDA [None]
  - HAEMORRHAGE INTRACRANIAL [None]
  - SEPTIC EMBOLUS [None]
